FAERS Safety Report 25315755 (Version 1)
Quarter: 2025Q2

REPORT INFORMATION
  Report Type: Spontaneous
  Country: US (occurrence: US)
  Receive Date: 20250515
  Receipt Date: 20250515
  Transmission Date: 20250717
  Serious: No
  Sender: ALEXION PHARMACEUTICALS
  Company Number: US-AstraZeneca-CH-00865753A

PATIENT

DRUGS (3)
  1. BREZTRI [Suspect]
     Active Substance: BUDESONIDE\FORMOTEROL\GLYCOPYRROLATE
     Indication: Chronic obstructive pulmonary disease
     Route: 065
  2. BREZTRI [Suspect]
     Active Substance: BUDESONIDE\FORMOTEROL\GLYCOPYRROLATE
     Indication: Emphysema
  3. AIMOVIG [Concomitant]
     Active Substance: ERENUMAB-AOOE
     Route: 065

REACTIONS (6)
  - Migraine [Unknown]
  - Secretion discharge [Unknown]
  - Device delivery system issue [Unknown]
  - Product use issue [Unknown]
  - Brain fog [Unknown]
  - Cough [Unknown]
